FAERS Safety Report 17921038 (Version 1)
Quarter: 2020Q2

REPORT INFORMATION
  Report Type: Spontaneous
  Country: CA (occurrence: CA)
  Receive Date: 20200622
  Receipt Date: 20200622
  Transmission Date: 20200714
  Serious: Yes (Life-Threatening, Hospitalization)
  Sender: FDA-Public Use
  Company Number: CA-ROCHE-2626798

PATIENT
  Age: 6 Year
  Sex: Female
  Weight: 19 kg

DRUGS (37)
  1. MYCOPHENOLATE MOFETIL. [Suspect]
     Active Substance: MYCOPHENOLATE MOFETIL
     Dosage: 40.0 DAYS
     Route: 042
  2. BUSULFAN. [Suspect]
     Active Substance: BUSULFAN
     Dosage: 1 DAYS
     Route: 042
  3. BUSULFAN. [Suspect]
     Active Substance: BUSULFAN
     Route: 042
  4. ACYCLOVIR [ACICLOVIR] [Concomitant]
     Active Substance: ACYCLOVIR
  5. CETIRIZINE [Concomitant]
     Active Substance: CETIRIZINE HYDROCHLORIDE
     Route: 065
  6. EPINEPHRINE. [Concomitant]
     Active Substance: EPINEPHRINE
     Dosage: SOLUTION?INTRAMUSCULAR
     Route: 030
  7. GANCICLOVIR. [Concomitant]
     Active Substance: GANCICLOVIR
     Dosage: POWDER FOR?SOLUTION?INTRAVENOUS
     Route: 042
  8. HYDROCORTISONE. [Concomitant]
     Active Substance: HYDROCORTISONE
     Dosage: POWDER FOR?SOLUTION?INTRAMUSCULAR
     Route: 030
  9. METRONIDAZOLE. [Concomitant]
     Active Substance: METRONIDAZOLE
     Route: 065
  10. ONDANSETRON [Concomitant]
     Active Substance: ONDANSETRON
     Route: 065
  11. PIPERACILLIN AND TAZOBACTAM [Concomitant]
     Active Substance: PIPERACILLIN SODIUM\TAZOBACTAM SODIUM
     Dosage: INJECTION
     Route: 042
  12. VORICONAZOLE. [Concomitant]
     Active Substance: VORICONAZOLE
  13. FLUDARABINE [Suspect]
     Active Substance: FLUDARABINE PHOSPHATE
     Indication: STEM CELL TRANSPLANT
     Dosage: 3 DAYS
     Route: 042
  14. ACETAMINOPHEN. [Concomitant]
     Active Substance: ACETAMINOPHEN
  15. CHLORHEXIDINE [Concomitant]
     Active Substance: CHLORHEXIDINE
  16. CICLOSPORIN [Concomitant]
     Active Substance: CYCLOSPORINE
  17. METOCLOPRAMIDE. [Concomitant]
     Active Substance: METOCLOPRAMIDE
  18. PREDNISONE. [Concomitant]
     Active Substance: PREDNISONE
     Route: 065
  19. AMLODIPINE [Concomitant]
     Active Substance: AMLODIPINE BESYLATE
     Route: 065
  20. DIMENHYDRINATE. [Concomitant]
     Active Substance: DIMENHYDRINATE
     Dosage: LIQUID?INTRAVENOUS
     Route: 042
  21. MYCOPHENOLATE MOFETIL. [Suspect]
     Active Substance: MYCOPHENOLATE MOFETIL
     Indication: PROPHYLAXIS AGAINST GRAFT VERSUS HOST DISEASE
     Dosage: 15 DAYS
     Route: 048
  22. DEXAMETHASONE. [Concomitant]
     Active Substance: DEXAMETHASONE
     Dosage: LIQUID INTRAARTICULAR
     Route: 014
  23. HEPARIN CALCIUM [Concomitant]
     Active Substance: HEPARIN CALCIUM
     Route: 065
  24. LORAZEPAM. [Concomitant]
     Active Substance: LORAZEPAM
     Route: 065
  25. CEFTAZIDIME. [Concomitant]
     Active Substance: CEFTAZIDIME
     Dosage: POWDER FOR?SOLUTION
     Route: 065
  26. FUROSEMIDE. [Concomitant]
     Active Substance: FUROSEMIDE
     Route: 065
  27. POLYETHYLENE GLYCOL [MACROGOL] [Concomitant]
     Active Substance: POLYETHYLENE GLYCOLS
     Route: 065
  28. SODIUM [Concomitant]
     Active Substance: SODIUM
  29. AMPHOTERICIN B. [Concomitant]
     Active Substance: AMPHOTERICIN B
  30. LEVETIRACETAM. [Concomitant]
     Active Substance: LEVETIRACETAM
     Route: 065
  31. TRIMETHOPRIM. [Concomitant]
     Active Substance: TRIMETHOPRIM
     Route: 065
  32. MYCOPHENOLATE MOFETIL. [Suspect]
     Active Substance: MYCOPHENOLATE MOFETIL
     Indication: PROPHYLAXIS AGAINST GRAFT VERSUS HOST DISEASE
     Dosage: 10.0 DAYS
     Route: 042
  33. BUSULFAN. [Suspect]
     Active Substance: BUSULFAN
     Indication: STEM CELL TRANSPLANT
     Dosage: 1 DAYS
     Route: 042
  34. DIPHENHYDRAMINE. [Concomitant]
     Active Substance: DIPHENHYDRAMINE
     Route: 065
  35. NIFEDIPINE. [Concomitant]
     Active Substance: NIFEDIPINE
     Route: 065
  36. MAGNESIUM [Concomitant]
     Active Substance: MAGNESIUM
  37. TOBRAMYCIN. [Concomitant]
     Active Substance: TOBRAMYCIN

REACTIONS (2)
  - Aplastic anaemia [Recovered/Resolved]
  - Bone marrow toxicity [Recovered/Resolved]
